FAERS Safety Report 9727189 (Version 1)
Quarter: 2013Q4

REPORT INFORMATION
  Report Type: Spontaneous
  Country: US (occurrence: US)
  Receive Date: 20131203
  Receipt Date: 20131203
  Transmission Date: 20140711
  Serious: No
  Sender: FDA-Public Use
  Company Number: US-BRISTOL-MYERS SQUIBB COMPANY-19586122

PATIENT
  Sex: Female

DRUGS (2)
  1. KOMBIGLYZE XR [Suspect]
     Indication: TYPE 2 DIABETES MELLITUS
  2. INSULIN [Suspect]
     Indication: TYPE 2 DIABETES MELLITUS

REACTIONS (2)
  - Abdominal discomfort [Recovering/Resolving]
  - Muscle spasms [Recovering/Resolving]
